FAERS Safety Report 4453790-6 (Version None)
Quarter: 2004Q3

REPORT INFORMATION
  Report Type: 
  Country: None (occurrence: None)
  Receive Date: 20040920
  Receipt Date: 20040914
  Transmission Date: 20050211
  Serious: Yes (Other)
  Sender: FDA-Public Use
  Company Number: PHBS2004BR12162

PATIENT
  Age: 47 Year
  Sex: Female
  Weight: 70 kg

DRUGS (3)
  1. SANDOSTATIN LAR [Suspect]
     Indication: ACROMEGALY
     Dosage: UNK, QMO
     Route: 030
     Dates: start: 20010101
  2. AMPLICTIL [Concomitant]
     Indication: PAIN
     Dosage: 30 DRP, Q8H
     Route: 048
  3. TYLEX [Concomitant]
     Indication: PAIN
     Dosage: 30 MG, Q8H
     Route: 048

REACTIONS (10)
  - COORDINATION ABNORMAL [None]
  - DYSPHONIA [None]
  - EYE LUXATION [None]
  - HEART RATE INCREASED [None]
  - MEDICATION ERROR [None]
  - MIGRAINE [None]
  - NEOPLASM [None]
  - PROCEDURAL COMPLICATION [None]
  - VISUAL ACUITY REDUCED [None]
  - VISUAL FIELD DEFECT [None]
